FAERS Safety Report 16202834 (Version 1)
Quarter: 2019Q2

REPORT INFORMATION
  Report Type: Spontaneous
  Country: US (occurrence: US)
  Receive Date: 20190313
  Receipt Date: 20190313
  Transmission Date: 20190711
  Serious: Yes (Life-Threatening, Hospitalization, Disabling, Other)
  Sender: FDA-Public Use
  Company Number: None

PATIENT
  Age: 66 Year
  Sex: Female
  Weight: 84.37 kg

DRUGS (3)
  1. AMITIZA [Concomitant]
     Active Substance: LUBIPROSTONE
  2. CYCLOBENZAPRINE. [Concomitant]
     Active Substance: CYCLOBENZAPRINE
  3. TRAMADOL 50MG TABLETS [Suspect]
     Active Substance: TRAMADOL HYDROCHLORIDE
     Route: 048
     Dates: start: 20170214, end: 20170219

REACTIONS (13)
  - Vomiting [None]
  - Constipation [None]
  - Abdominal distension [None]
  - Blood urine present [None]
  - Vaginal laceration [None]
  - Haematochezia [None]
  - Large intestine polyp [None]
  - Drug ineffective [None]
  - Chest pain [None]
  - Anal sphincter hypertonia [None]
  - Abdominal pain upper [None]
  - Flatulence [None]
  - Obstruction [None]

NARRATIVE: CASE EVENT DATE: 20170214
